FAERS Safety Report 10062383 (Version 2)
Quarter: 2014Q2

REPORT INFORMATION
  Report Type: Spontaneous
  Country: US (occurrence: US)
  Receive Date: 20140407
  Receipt Date: 20140414
  Transmission Date: 20141212
  Serious: No
  Sender: FDA-Public Use
  Company Number: US-PFIZER INC-2014094733

PATIENT
  Age: 68 Year
  Sex: Female
  Weight: 81.63 kg

DRUGS (1)
  1. CHANTIX [Suspect]
     Indication: TOBACCO USER
     Dosage: UNK
     Dates: start: 20140311

REACTIONS (1)
  - Hypertension [Unknown]
